FAERS Safety Report 8963913 (Version 1)
Quarter: 2012Q4

REPORT INFORMATION
  Report Type: 
  Country: NO (occurrence: NO)
  Receive Date: 20121214
  Receipt Date: 20121214
  Transmission Date: 20130627
  Serious: Yes (Hospitalization)
  Sender: FDA-Public Use
  Company Number: NO-009507513-1212NOR004356

PATIENT
  Age: 89 Year
  Sex: Male

DRUGS (13)
  1. SIMVASTATIN [Suspect]
     Indication: PRODUCT USED FOR UNKNOWN INDICATION
     Dosage: 40 mg, qd
     Dates: end: 201210
  2. KALEORID [Suspect]
     Indication: PRODUCT USED FOR UNKNOWN INDICATION
     Dosage: 750 mg, bid
  3. SELO-ZOK [Suspect]
     Indication: PRODUCT USED FOR UNKNOWN INDICATION
     Dosage: 50 mg, qd
  4. DICLOCIL [Suspect]
     Indication: THROMBOPHLEBITIS
     Dosage: 500 mg, tid
     Dates: start: 20121004, end: 20121012
  5. DICLOCIL [Suspect]
     Indication: WOUND INFECTION
  6. PLAVIX [Concomitant]
     Indication: PRODUCT USED FOR UNKNOWN INDICATION
  7. NIFEREX [Concomitant]
     Indication: PRODUCT USED FOR UNKNOWN INDICATION
  8. FUCIDIN (FUSIDATE SODIUM) [Suspect]
     Indication: PRODUCT USED FOR UNKNOWN INDICATION
     Dosage: 500 mg, tid
     Dates: start: 20121004, end: 20121012
  9. DIURAL [Suspect]
     Indication: PRODUCT USED FOR UNKNOWN INDICATION
     Dosage: 20 mg, qd
     Dates: end: 201210
  10. TRIATEC (RAMIPRIL) [Suspect]
     Indication: PRODUCT USED FOR UNKNOWN INDICATION
     Dosage: 1.25 mg, bid
  11. HIRUDOID [Concomitant]
     Indication: PRODUCT USED FOR UNKNOWN INDICATION
  12. TRIOBE [Concomitant]
     Indication: PRODUCT USED FOR UNKNOWN INDICATION
  13. SOMAC [Concomitant]
     Indication: PRODUCT USED FOR UNKNOWN INDICATION

REACTIONS (3)
  - Blood pressure decreased [Unknown]
  - Blood creatinine increased [Unknown]
  - Myoglobin blood increased [Unknown]
